FAERS Safety Report 7999758-4 (Version None)
Quarter: 2011Q4

REPORT INFORMATION
  Report Type: 
  Country: None (occurrence: None)
  Receive Date: 20111221
  Receipt Date: 20111209
  Transmission Date: 20120403
  Serious: Yes (Other)
  Sender: FDA-Public Use
  Company Number: US-MYLANLABS-2011S1025691

PATIENT
  Age: 13 Year
  Sex: Female

DRUGS (2)
  1. BUPROPION HCL [Suspect]
     Indication: OVERDOSE
     Route: 048
  2. BACLOFEN [Suspect]
     Indication: OVERDOSE
     Route: 048

REACTIONS (6)
  - RESPIRATORY ARREST [None]
  - COMA [None]
  - BRADYCARDIA [None]
  - OVERDOSE [None]
  - GRAND MAL CONVULSION [None]
  - ELECTROENCEPHALOGRAM ABNORMAL [None]
